FAERS Safety Report 17056769 (Version 2)
Quarter: 2019Q4

REPORT INFORMATION
  Report Type: Spontaneous
  Country: FR (occurrence: FR)
  Receive Date: 20191121
  Receipt Date: 20191121
  Transmission Date: 20200122
  Serious: Yes (Death, Other)
  Sender: FDA-Public Use
  Company Number: FR-AUROBINDO-AUR-APL-2019-074040

PATIENT
  Age: 60 Year
  Sex: Male

DRUGS (4)
  1. XYLOCAINE [Interacting]
     Active Substance: LIDOCAINE HYDROCHLORIDE
     Indication: ARRHYTHMIA
     Dosage: UNK
     Route: 065
  2. CORDARONE X [Concomitant]
     Active Substance: AMIODARONE HYDROCHLORIDE
     Indication: TACHYCARDIA
     Dosage: 300 MILLIGRAM
     Route: 065
  3. XYLOCAINE [Interacting]
     Active Substance: LIDOCAINE HYDROCHLORIDE
     Indication: TACHYCARDIA
     Dosage: 90 MILLIGRAM
     Route: 040
  4. BISOPROLOL [Suspect]
     Active Substance: BISOPROLOL
     Indication: CARDIAC DISORDER
     Dosage: UNK
     Route: 065

REACTIONS (4)
  - Epilepsy [Unknown]
  - Cardiac arrest [Fatal]
  - Heart rate decreased [Unknown]
  - Labelled drug-drug interaction medication error [Unknown]
